FAERS Safety Report 9499883 (Version 3)
Quarter: 2013Q4

REPORT INFORMATION
  Report Type: Spontaneous
  Country: US (occurrence: None)
  Receive Date: 20130107
  Receipt Date: 20131226
  Transmission Date: 20140711
  Serious: Yes (Other)
  Sender: FDA-Public Use
  Company Number: PHEH2012US023293

PATIENT
  Age: 40 Year
  Sex: Female

DRUGS (4)
  1. GILENYA [Suspect]
     Indication: MULTIPLE SCLEROSIS
     Route: 048
     Dates: start: 20120820
  2. BACLOFEN [Concomitant]
  3. PRAMIPEXOLE (PRAMIPEXOLE) [Concomitant]
  4. VIT D [Concomitant]

REACTIONS (1)
  - Hypotension [None]
